FAERS Safety Report 11996260 (Version 3)
Quarter: 2016Q1

REPORT INFORMATION
  Report Type: Spontaneous
  Country: NL (occurrence: NL)
  Receive Date: 20160203
  Receipt Date: 20160320
  Transmission Date: 20160526
  Serious: Yes (Hospitalization)
  Sender: FDA-Public Use
  Company Number: NL-BIOGEN-2015BI00162687

PATIENT
  Sex: Female

DRUGS (1)
  1. TECFIDERA [Suspect]
     Active Substance: DIMETHYL FUMARATE
     Indication: MULTIPLE SCLEROSIS
     Route: 048
     Dates: start: 201412, end: 20160224

REACTIONS (12)
  - Tremor [Not Recovered/Not Resolved]
  - Rhinorrhoea [Recovered/Resolved]
  - Blood glucose increased [Recovered/Resolved]
  - Dyspnoea [Not Recovered/Not Resolved]
  - Muscle spasms [Recovered/Resolved]
  - Palpitations [Recovered/Resolved]
  - Dizziness [Recovered/Resolved]
  - Oropharyngeal pain [Not Recovered/Not Resolved]
  - Nausea [Recovered/Resolved]
  - Hot flush [Recovered/Resolved]
  - Vomiting [Recovered/Resolved]
  - Feeling of body temperature change [Recovered/Resolved]
